FAERS Safety Report 11881260 (Version 3)
Quarter: 2016Q1

REPORT INFORMATION
  Report Type: Spontaneous
  Country: JP (occurrence: JP)
  Receive Date: 20151231
  Receipt Date: 20160329
  Transmission Date: 20160526
  Serious: Yes (Other)
  Sender: FDA-Public Use
  Company Number: JP-009507513-1509JPN007482

PATIENT
  Age: 72 Year
  Sex: Male
  Weight: 58 kg

DRUGS (10)
  1. ESLAX INTRAVENOUS 25MG/2.5ML [Suspect]
     Active Substance: ROCURONIUM BROMIDE
     Dosage: DIVIDED DOSE FREQUENCY UNKNOWN,10 MG, QD
     Route: 042
     Dates: start: 20150827, end: 20150827
  2. AZILVA [Concomitant]
     Active Substance: AZILSARTAN KAMEDOXOMIL
     Dosage: 40 MG, QD
     Route: 048
  3. PROPOFOL. [Suspect]
     Active Substance: PROPOFOL
     Indication: INDUCTION OF ANAESTHESIA
     Dosage: TOTAL DAILY DOSE: 1000 MICROGRAM; DIVIDED DOSE FREQUENCY UNKNOWN)
     Route: 042
     Dates: start: 20150827, end: 20150827
  4. ESLAX INTRAVENOUS 25MG/2.5ML [Suspect]
     Active Substance: ROCURONIUM BROMIDE
     Indication: NEUROMUSCULAR BLOCKING THERAPY
     Dosage: DIVIDED DOSE FREQUENCY UNKNOWN 40 MG, QD
     Route: 042
     Dates: start: 20150827, end: 20150827
  5. FENTANYL. [Concomitant]
     Active Substance: FENTANYL
     Indication: INDUCTION OF ANAESTHESIA
     Dosage: TOTAL DAILY DOSE: 0.1 MG; DIVIDED DOSE FREQUENCY UNKNOWN
     Route: 051
     Dates: start: 20150827, end: 20150827
  6. DESFLURANE. [Concomitant]
     Active Substance: DESFLURANE
     Indication: MAINTENANCE OF ANAESTHESIA
     Dosage: DAILY DOSAGE UNKNOWN
     Route: 055
     Dates: start: 20150827, end: 20150827
  7. ULTIVA [Concomitant]
     Active Substance: REMIFENTANIL HYDROCHLORIDE
     Indication: MAINTENANCE OF ANAESTHESIA
     Dosage: DAILY DOSAGE UNKNOWN
     Route: 042
     Dates: start: 20150827, end: 20150827
  8. AMLODIPINE [Concomitant]
     Active Substance: AMLODIPINE BESYLATE
     Dosage: 5 MG, BID
     Route: 048
  9. MAINTATE [Concomitant]
     Active Substance: BISOPROLOL FUMARATE
     Dosage: 5 MG, QD
     Route: 048
  10. ALOSITOL [Concomitant]
     Active Substance: ALLOPURINOL
     Indication: GOUT
     Dosage: 100 MG, QD
     Route: 048

REACTIONS (3)
  - Heart rate decreased [Unknown]
  - Rash [Recovered/Resolved]
  - Blood pressure decreased [Unknown]

NARRATIVE: CASE EVENT DATE: 20150827
